FAERS Safety Report 6348109-X (Version None)
Quarter: 2009Q3

REPORT INFORMATION
  Report Type: 
  Country: None (occurrence: None)
  Receive Date: 20090910
  Receipt Date: 20090907
  Transmission Date: 20100115
  Serious: Yes (Hospitalization)
  Sender: FDA-Public Use
  Company Number: FR-AMGEN-UK359952

PATIENT
  Sex: Female

DRUGS (5)
  1. ARANESP [Suspect]
     Indication: RENAL FAILURE CHRONIC
     Route: 058
     Dates: start: 20080801, end: 20081001
  2. MIRCERA [Suspect]
     Route: 058
     Dates: start: 20081002, end: 20090105
  3. ARAVA [Concomitant]
     Route: 065
     Dates: start: 20070301, end: 20081001
  4. NEORECORMON [Concomitant]
     Dates: start: 20090320, end: 20090325
  5. OCTAGAM [Concomitant]
     Route: 065
     Dates: start: 20090203, end: 20090207

REACTIONS (1)
  - APLASIA PURE RED CELL [None]
